FAERS Safety Report 5860687-3 (Version None)
Quarter: 2008Q3

REPORT INFORMATION
  Report Type: 
  Country: None (occurrence: None)
  Receive Date: 20080827
  Receipt Date: 20071014
  Transmission Date: 20090109
  Serious: No
  Sender: FDA-Public Use
  Company Number: US-ABBOTT-07P-163-0421502-00

PATIENT
  Sex: Male
  Weight: 81.72 kg

DRUGS (4)
  1. COATED PDS [Suspect]
     Indication: BLOOD TRIGLYCERIDES INCREASED
     Dosage: COATED
     Route: 048
     Dates: start: 20071001, end: 20071009
  2. COATED PDS [Suspect]
     Dosage: WHITE
     Dates: start: 20060101, end: 20071001
  3. INEGY [Concomitant]
     Indication: BLOOD TRIGLYCERIDES INCREASED
     Route: 048
  4. ACETYLSALICYLIC ACID SRT [Concomitant]
     Indication: DRUG USE FOR UNKNOWN INDICATION
     Route: 048

REACTIONS (1)
  - ERUCTATION [None]
